FAERS Safety Report 17773906 (Version 1)
Quarter: 2020Q2

REPORT INFORMATION
  Report Type: Other
  Country: JP (occurrence: JP)
  Receive Date: 20200513
  Receipt Date: 20200513
  Transmission Date: 20200714
  Serious: Yes (Other)
  Sender: FDA-Public Use
  Company Number: JP-HEALTHCARE PHARMACEUTICALS LTD.-2083735

PATIENT
  Age: 61 Year
  Sex: Female

DRUGS (1)
  1. DOXORUBICIN HYDROCHLORIDE. [Suspect]
     Active Substance: DOXORUBICIN HYDROCHLORIDE
     Indication: SYNOVIAL SARCOMA
     Route: 065
     Dates: start: 201604, end: 201612

REACTIONS (1)
  - Synovial sarcoma recurrent [Not Recovered/Not Resolved]
